FAERS Safety Report 7619617-6 (Version None)
Quarter: 2011Q3

REPORT INFORMATION
  Report Type: 
  Country: None (occurrence: None)
  Receive Date: 20110719
  Receipt Date: 20110706
  Transmission Date: 20111222
  Serious: Yes (Other)
  Sender: FDA-Public Use
  Company Number: US-BAYER-2010-006598

PATIENT
  Age: 38 Year
  Sex: Female

DRUGS (2)
  1. YAZ [Suspect]
     Indication: ACNE
     Dosage: UNK
     Dates: start: 20080401, end: 20081201
  2. YAZ [Suspect]
     Indication: ORAL CONTRACEPTION

REACTIONS (4)
  - GALLBLADDER DISORDER [None]
  - PAIN [None]
  - INJURY [None]
  - CHOLECYSTITIS [None]
